FAERS Safety Report 20576066 (Version 1)
Quarter: 2022Q1

REPORT INFORMATION
  Report Type: Spontaneous
  Country: US (occurrence: US)
  Receive Date: 20220310
  Receipt Date: 20220310
  Transmission Date: 20220423
  Serious: Yes (Other)
  Sender: FDA-Public Use
  Company Number: US-CELLTRION INC.-2022US002678

PATIENT

DRUGS (2)
  1. TRUXIMA [Suspect]
     Active Substance: RITUXIMAB-ABBS
     Indication: Nephrotic syndrome
     Dosage: 1 GRAM, ONCE
     Dates: start: 20220228
  2. TRUXIMA [Suspect]
     Active Substance: RITUXIMAB-ABBS
     Indication: Glomerulonephritis membranous

REACTIONS (3)
  - Glomerulonephritis membranous [Unknown]
  - Nephrotic syndrome [Unknown]
  - Off label use [Unknown]
